FAERS Safety Report 5137950-7 (Version None)
Quarter: 2006Q4

REPORT INFORMATION
  Report Type: 
  Country: None (occurrence: None)
  Receive Date: 20061024
  Receipt Date: 20061011
  Transmission Date: 20070319
  Serious: Yes (Hospitalization, Other)
  Sender: FDA-Public Use
  Company Number: 2006127969

PATIENT
  Age: 74 Year
  Sex: Male

DRUGS (4)
  1. CELECOXIB (CELECOXIB) [Suspect]
     Indication: BACK INJURY
     Dosage: ORAL
     Route: 048
     Dates: start: 20060801, end: 20060801
  2. ATENOLOL [Suspect]
     Indication: HYPERTENSION
     Dosage: 50 MG, ORAL
     Route: 048
     Dates: start: 19960101
  3. QUINAPRIL HCL [Suspect]
     Indication: HYPERTENSION
     Dosage: 40 MG, ORAL
     Route: 048
     Dates: start: 19980101
  4. ROPINIROLE HYDROCHLORIDE (ROPINIROLE HYDROCHLORIDE) [Suspect]
     Indication: PARKINSON'S DISEASE
     Dosage: ORAL
     Route: 048
     Dates: start: 20041021

REACTIONS (2)
  - BLOOD PRESSURE INCREASED [None]
  - DISORIENTATION [None]
